FAERS Safety Report 5529636-1 (Version None)
Quarter: 2007Q4

REPORT INFORMATION
  Report Type: 
  Country: None (occurrence: None)
  Receive Date: 20071129
  Receipt Date: 20071115
  Transmission Date: 20080405
  Serious: Yes (Hospitalization, Congenital Anomaly)
  Sender: FDA-Public Use
  Company Number: US-ABBOTT-07P-163-0423237-00

PATIENT
  Sex: Male
  Weight: 2.155 kg

DRUGS (2)
  1. WARFARIN SODIUM [Suspect]
     Indication: DRUG EXPOSURE DURING PREGNANCY
     Route: 064
  2. EPOPROSTENOL SODIUM [Suspect]
     Indication: DRUG EXPOSURE DURING PREGNANCY
     Route: 064

REACTIONS (4)
  - CONGENITAL HYDROCEPHALUS [None]
  - DYSMORPHISM [None]
  - FOETAL WARFARIN SYNDROME [None]
  - PREMATURE BABY [None]
